FAERS Safety Report 5828246-6 (Version None)
Quarter: 2008Q3

REPORT INFORMATION
  Report Type: 
  Country: None (occurrence: None)
  Receive Date: 20080729
  Receipt Date: 20080716
  Transmission Date: 20090109
  Serious: Yes (Other)
  Sender: FDA-Public Use
  Company Number: WAES 0807USA03119

PATIENT
  Age: 55 Year
  Sex: Female
  Weight: 87.9978 kg

DRUGS (3)
  1. DECADRON [Suspect]
     Dosage: PO
     Route: 048
  2. TEMODAR [Suspect]
     Indication: GLIOBLASTOMA MULTIFORME
     Dosage: DAILY/PO
     Route: 048
     Dates: start: 20080519, end: 20080619
  3. DILANTIN [Suspect]

REACTIONS (2)
  - NEUTROPHIL COUNT DECREASED [None]
  - PLATELET COUNT DECREASED [None]
